FAERS Safety Report 4273888-5 (Version None)
Quarter: 2004Q1

REPORT INFORMATION
  Report Type: 
  Country: None (occurrence: None)
  Receive Date: 20040120
  Receipt Date: 20040114
  Transmission Date: 20041129
  Serious: Yes (Death, Hospitalization)
  Sender: FDA-Public Use
  Company Number: 200410328US

PATIENT
  Age: 75 Year
  Sex: Male

DRUGS (1)
  1. LOVENOX [Suspect]
     Indication: DEEP VENOUS THROMBOSIS PROPHYLAXIS
     Route: 058
     Dates: start: 20031201, end: 20031201

REACTIONS (2)
  - PULMONARY EMBOLISM [None]
  - SEPSIS [None]
